FAERS Safety Report 5400227-6 (Version None)
Quarter: 2007Q3

REPORT INFORMATION
  Report Type: 
  Country: None (occurrence: None)
  Receive Date: 20070725
  Receipt Date: 20070711
  Transmission Date: 20080115
  Serious: Yes (Hospitalization)
  Sender: FDA-Public Use
  Company Number: 158299ISR

PATIENT
  Age: 41 Year
  Sex: Male

DRUGS (6)
  1. FLUOROURACIL [Suspect]
     Indication: CHEMOTHERAPY
     Dosage: (CYCLIC) INTRAVENOUS (NOT OTHERWISE SPECIFIED)
     Route: 042
     Dates: start: 20060604, end: 20070727
  2. CALCIUM FOLINATE [Suspect]
     Indication: CHEMOTHERAPY
     Dosage: )50 MG, CYCLIC) INTRAVENOUS (NOT OTHERWISE SPECIFIED)
     Route: 042
     Dates: start: 20061204, end: 20070727
  3. BEVACIZUMAB [Suspect]
     Indication: CHEMOTHERAPY
     Dosage: 350 MG (CYCLIC) INTRAVENOUS (NOT OTHERWISE SPECIFIED)
     Route: 042
     Dates: start: 20061206, end: 20070627
  4. LANSOPRAZOLE [Concomitant]
  5. URSODIOL [Concomitant]
  6. ONDANSETRON [Concomitant]

REACTIONS (4)
  - ABDOMINAL PAIN [None]
  - BLOOD AMYLASE INCREASED [None]
  - OCULAR ICTERUS [None]
  - TRANSAMINASES INCREASED [None]
